FAERS Safety Report 26211572 (Version 1)
Quarter: 2025Q4

REPORT INFORMATION
  Report Type: Spontaneous
  Country: EU (occurrence: EU)
  Receive Date: 20251230
  Receipt Date: 20251230
  Transmission Date: 20260117
  Serious: Yes (Other)
  Sender: GE HEALTHCARE
  Company Number: EU-GE HEALTHCARE-2025CSU018252

PATIENT
  Sex: Female

DRUGS (2)
  1. OMNIPAQUE [Suspect]
     Active Substance: IOHEXOL
     Indication: Fistulogram
     Dosage: 20 ML, TOTAL
     Route: 050
  2. OMNIPAQUE [Suspect]
     Active Substance: IOHEXOL
     Indication: Enteroclysis

REACTIONS (2)
  - Systemic inflammatory response syndrome [Recovering/Resolving]
  - Hypothyroidism [Recovered/Resolved]
